FAERS Safety Report 5471171-3 (Version None)
Quarter: 2007Q3

REPORT INFORMATION
  Report Type: 
  Country: None (occurrence: None)
  Receive Date: 20070928
  Receipt Date: 20070920
  Transmission Date: 20080115
  Serious: Yes (Disabling)
  Sender: FDA-Public Use
  Company Number: GB-ABBOTT-07P-167-0417771-00

PATIENT
  Age: 40 Year
  Sex: Female

DRUGS (6)
  1. RITONAVIR SOFT GELATIN CAPSULES [Suspect]
     Indication: HIV INFECTION
     Route: 048
  2. TIPRANAVIR [Concomitant]
     Indication: DRUG USE FOR UNKNOWN INDICATION
     Dates: start: 20040101, end: 20040816
  3. ABACAVIR [Concomitant]
     Indication: HIV INFECTION
     Dates: start: 20010101
  4. KALETRA [Concomitant]
     Indication: HIV INFECTION
     Dates: start: 20010101, end: 20040816
  5. ATAZANAVIR SULFATE [Concomitant]
     Indication: HIV INFECTION
     Dates: start: 20040101
  6. TENOFOVIR DISOPROXIL FUMARATE [Concomitant]
     Indication: HIV INFECTION
     Dates: start: 20020101, end: 20040425

REACTIONS (2)
  - DIARRHOEA [None]
  - DRUG INEFFECTIVE [None]
